FAERS Safety Report 8006259-6 (Version None)
Quarter: 2011Q4

REPORT INFORMATION
  Report Type: 
  Country: None (occurrence: None)
  Receive Date: 20111226
  Receipt Date: 20111216
  Transmission Date: 20120403
  Serious: Yes (Death, Other)
  Sender: FDA-Public Use
  Company Number: US-NAPPMUNDI-USA-2011-0076316

PATIENT
  Sex: Male

DRUGS (6)
  1. CODEINE [Concomitant]
     Indication: PRODUCT USED FOR UNKNOWN INDICATION
  2. PERCODAN [Suspect]
     Indication: DRUG ABUSE
  3. HEROIN [Suspect]
     Indication: SUBSTANCE ABUSE
  4. OXYCONTIN [Suspect]
     Indication: DRUG ABUSE
  5. PERCOCET [Suspect]
     Indication: DRUG ABUSE
  6. MARIJUANA [Suspect]
     Indication: SUBSTANCE ABUSE

REACTIONS (5)
  - ACCIDENTAL DEATH [None]
  - UNRESPONSIVE TO STIMULI [None]
  - SUBSTANCE ABUSE [None]
  - EUPHORIC MOOD [None]
  - DRUG ABUSE [None]
